FAERS Safety Report 17658654 (Version 3)
Quarter: 2020Q4

REPORT INFORMATION
  Report Type: Spontaneous
  Country: US (occurrence: US)
  Receive Date: 20200412
  Receipt Date: 20201111
  Transmission Date: 20210113
  Serious: No
  Sender: FDA-Public Use
  Company Number: US-SA-2020SA092546

PATIENT

DRUGS (3)
  1. DUPIXENT [Suspect]
     Active Substance: DUPILUMAB
     Dosage: 300 MG, OTHER
     Route: 058
     Dates: start: 201912
  2. DUPIXENT [Suspect]
     Active Substance: DUPILUMAB
     Dosage: 300 MG
     Route: 058
     Dates: start: 202004
  3. DUPIXENT [Suspect]
     Active Substance: DUPILUMAB
     Dosage: UNK, OTHER
     Route: 058
     Dates: start: 20200101

REACTIONS (4)
  - Wrong technique in device usage process [Recovered/Resolved]
  - Urticaria [Unknown]
  - Injection site haemorrhage [Recovered/Resolved]
  - Product dose omission issue [Unknown]

NARRATIVE: CASE EVENT DATE: 20201103
